FAERS Safety Report 10889669 (Version 2)
Quarter: 2015Q2

REPORT INFORMATION
  Report Type: Spontaneous
  Country: US (occurrence: US)
  Receive Date: 20150305
  Receipt Date: 20150410
  Transmission Date: 20150821
  Serious: No
  Sender: FDA-Public Use
  Company Number: US-009507513-1503USA000017

PATIENT
  Age: 60 Year
  Sex: Male

DRUGS (3)
  1. RAMIPRIL. [Concomitant]
     Active Substance: RAMIPRIL
  2. PROVENTIL [Suspect]
     Active Substance: ALBUTEROL
     Dosage: 2 SPRAYS AS NEEDED 30 MINUTES BEFORE EXERCISE
     Route: 055
     Dates: start: 201406
  3. CHLORTHALIDONE. [Concomitant]
     Active Substance: CHLORTHALIDONE

REACTIONS (6)
  - Product quality issue [Unknown]
  - Product packaging quantity issue [Unknown]
  - Cough [Unknown]
  - Product odour abnormal [Unknown]
  - Product taste abnormal [Unknown]
  - Drug ineffective [Unknown]

NARRATIVE: CASE EVENT DATE: 201406
